FAERS Safety Report 7267709-6 (Version None)
Quarter: 2011Q1

REPORT INFORMATION
  Report Type: 
  Country: None (occurrence: None)
  Receive Date: 20110201
  Receipt Date: 20110124
  Transmission Date: 20110831
  Serious: No
  Sender: FDA-Public Use
  Company Number: US-PFIZER INC-2010156042

PATIENT
  Sex: Female

DRUGS (2)
  1. ANTIVERT [Suspect]
     Dosage: UNK
  2. MECLIZINE HYDROCHLORIDE [Suspect]
     Dosage: 25 MG, UNK

REACTIONS (4)
  - HEADACHE [None]
  - MALAISE [None]
  - DIARRHOEA [None]
  - EXPIRED DRUG ADMINISTERED [None]
